FAERS Safety Report 24014353 (Version 1)
Quarter: 2024Q2

REPORT INFORMATION
  Report Type: Spontaneous
  Country: CH (occurrence: None)
  Receive Date: 20240626
  Receipt Date: 20240626
  Transmission Date: 20240716
  Serious: Yes (Hospitalization, Other)
  Sender: FDA-Public Use
  Company Number: CH-Unichem Pharmaceuticals (USA) Inc-UCM202406-000744

PATIENT
  Age: 60 Year
  Sex: Male

DRUGS (1)
  1. AMIODARONE HYDROCHLORIDE [Suspect]
     Active Substance: AMIODARONE HYDROCHLORIDE
     Indication: Ventricular tachycardia
     Dosage: UNKNOWN

REACTIONS (7)
  - Hypercalcaemia [Unknown]
  - Hyperphosphataemia [Unknown]
  - Blood parathyroid hormone decreased [Unknown]
  - Vitamin D deficiency [Unknown]
  - Hyperthyroidism [Unknown]
  - Nausea [Unknown]
  - Vomiting [Unknown]
